FAERS Safety Report 11083297 (Version 1)
Quarter: 2015Q2

REPORT INFORMATION
  Report Type: Spontaneous
  Country: US (occurrence: US)
  Receive Date: 20150501
  Receipt Date: 20150501
  Transmission Date: 20150821
  Serious: No
  Sender: FDA-Public Use
  Company Number: US-ABBVIE-15P-163-1351285-00

PATIENT
  Sex: Male
  Weight: 90.8 kg

DRUGS (5)
  1. ANDROGEL [Suspect]
     Active Substance: TESTOSTERONE
     Indication: PRODUCT USED FOR UNKNOWN INDICATION
     Dosage: 3 PUMPS
     Route: 061
     Dates: start: 2012
  2. FENOFIBRATE. [Concomitant]
     Active Substance: FENOFIBRATE
     Indication: PRODUCT USED FOR UNKNOWN INDICATION
  3. ANDROGEL [Suspect]
     Active Substance: TESTOSTERONE
     Indication: PRODUCT USED FOR UNKNOWN INDICATION
     Route: 061
     Dates: start: 2010, end: 2012
  4. LISINOPRIL. [Concomitant]
     Active Substance: LISINOPRIL
     Indication: PRODUCT USED FOR UNKNOWN INDICATION
  5. OMEPRAZOLE. [Concomitant]
     Active Substance: OMEPRAZOLE
     Indication: PRODUCT USED FOR UNKNOWN INDICATION

REACTIONS (1)
  - Musculoskeletal pain [Not Recovered/Not Resolved]
